FAERS Safety Report 25715380 (Version 1)
Quarter: 2025Q3

REPORT INFORMATION
  Report Type: Spontaneous
  Country: US (occurrence: None)
  Receive Date: 20250821
  Receipt Date: 20250821
  Transmission Date: 20251020
  Serious: Yes (Hospitalization)
  Sender: FDA-CTU
  Company Number: None

PATIENT
  Sex: Male

DRUGS (5)
  1. PIRFENIDONE [Suspect]
     Active Substance: PIRFENIDONE
     Indication: Idiopathic pulmonary fibrosis
     Route: 048
     Dates: start: 20220706
  2. ESBRIET [Concomitant]
     Active Substance: PIRFENIDONE
  3. MAGNESIUM [Concomitant]
     Active Substance: MAGNESIUM
  4. NICODERM CQ [Concomitant]
     Active Substance: NICOTINE
  5. PROAIR HFA [Concomitant]
     Active Substance: ALBUTEROL SULFATE

REACTIONS (2)
  - Fall [None]
  - Head injury [None]
